FAERS Safety Report 25672854 (Version 1)
Quarter: 2025Q3

REPORT INFORMATION
  Report Type: Spontaneous
  Country: US (occurrence: US)
  Receive Date: 20250812
  Receipt Date: 20250812
  Transmission Date: 20251021
  Serious: Yes (Hospitalization)
  Sender: MERCK SHARP & DOHME LLC
  Company Number: US-009507513-2318203

PATIENT
  Age: 50 Year
  Sex: Male

DRUGS (2)
  1. PIFELTRO [Suspect]
     Active Substance: DORAVIRINE
     Route: 048
  2. BIKTARVY [Suspect]
     Active Substance: BICTEGRAVIR SODIUM\EMTRICITABINE\TENOFOVIR ALAFENAMIDE FUMARATE

REACTIONS (2)
  - Nausea [Unknown]
  - Diarrhoea [Unknown]
